FAERS Safety Report 9049059 (Version 1)
Quarter: 2013Q1

REPORT INFORMATION
  Report Type: Spontaneous
  Country: US (occurrence: US)
  Receive Date: 20130204
  Receipt Date: 20130204
  Transmission Date: 20140127
  Serious: Yes (Other)
  Sender: FDA-Public Use
  Company Number: US-BRISTOL-MYERS SQUIBB COMPANY-17316720

PATIENT
  Age: 55 Year
  Sex: Male

DRUGS (2)
  1. ABILIFY TABS 5 MG [Suspect]
  2. LEXAPRO [Suspect]

REACTIONS (3)
  - Mania [Unknown]
  - Arthralgia [Recovered/Resolved]
  - Fatigue [Recovered/Resolved]
